FAERS Safety Report 10031234 (Version 3)
Quarter: 2014Q2

REPORT INFORMATION
  Report Type: Spontaneous
  Country: US (occurrence: US)
  Receive Date: 20140324
  Receipt Date: 20140421
  Transmission Date: 20141212
  Serious: No
  Sender: FDA-Public Use
  Company Number: US-009507513-1403USA010183

PATIENT
  Sex: 0

DRUGS (1)
  1. REMERON SOLTAB [Suspect]
     Dosage: 7.5 MG, UNK
     Route: 048

REACTIONS (2)
  - Wrong technique in drug usage process [Unknown]
  - No adverse event [Unknown]
